FAERS Safety Report 11789953 (Version 1)
Quarter: 2015Q4

REPORT INFORMATION
  Report Type: Spontaneous
  Country: CA (occurrence: CA)
  Receive Date: 20151201
  Receipt Date: 20151201
  Transmission Date: 20160305
  Serious: Yes (Other)
  Sender: FDA-Public Use
  Company Number: CA-TEVA-611377ACC

PATIENT
  Age: 60 Year
  Sex: Female
  Weight: 138 kg

DRUGS (6)
  1. SPIRONOLACTONE. [Concomitant]
     Active Substance: SPIRONOLACTONE
  2. DOXYCYCLINE. [Suspect]
     Active Substance: DOXYCYCLINE
     Indication: ANIMAL SCRATCH
  3. DOXYCYCLINE. [Suspect]
     Active Substance: DOXYCYCLINE
     Indication: WOUND INFECTION
     Dosage: 200 MILLIGRAM DAILY;
     Route: 048
  4. XARELTO [Concomitant]
     Active Substance: RIVAROXABAN
  5. BISOPROLOL [Concomitant]
     Active Substance: BISOPROLOL
  6. FUROSEMIDE. [Concomitant]
     Active Substance: FUROSEMIDE

REACTIONS (5)
  - Cough [Unknown]
  - Choking [Unknown]
  - Peripheral swelling [Unknown]
  - Fluid retention [Unknown]
  - Dysuria [Unknown]
